FAERS Safety Report 7520904-0 (Version None)
Quarter: 2011Q2

REPORT INFORMATION
  Report Type: 
  Country: None (occurrence: None)
  Receive Date: 20110603
  Receipt Date: 20101124
  Transmission Date: 20111010
  Serious: Yes (Other)
  Sender: FDA-Public Use
  Company Number: US-BAYER-2010-003210

PATIENT
  Age: 15 Year
  Sex: Female
  Weight: 110 kg

DRUGS (13)
  1. YAZ [Suspect]
     Indication: PREMENSTRUAL SYNDROME
  2. DROSPIRENONE AND ETHINYL ESTRADIOL [Suspect]
     Indication: ACNE
     Dosage: UNK
     Dates: start: 20080101, end: 20090101
  3. LORTAB [Concomitant]
     Indication: NAUSEA
  4. YAZ [Suspect]
     Indication: ACNE
     Dosage: UNK
     Dates: start: 20080101, end: 20090101
  5. YASMIN [Suspect]
     Indication: ACNE
     Dosage: UNK
     Dates: start: 20080101, end: 20090101
  6. YASMIN [Suspect]
     Indication: PREMENSTRUAL SYNDROME
  7. HYDROXYZINE [Concomitant]
     Indication: HYPERSENSITIVITY
     Dosage: 25 MG, BID
     Route: 048
  8. DROSPIRENONE AND ETHINYL ESTRADIOL [Suspect]
  9. SULFAMETHOXAZOLE [Concomitant]
     Dosage: UNK UNK, QD
     Route: 048
  10. YAZ [Suspect]
  11. YASMIN [Suspect]
  12. RANITIDINE [Concomitant]
     Dosage: 150 MG, QD
     Route: 048
  13. DROSPIRENONE AND ETHINYL ESTRADIOL [Suspect]
     Indication: PREMENSTRUAL SYNDROME

REACTIONS (8)
  - MUSCLE SPASMS [None]
  - CHOLECYSTITIS CHRONIC [None]
  - DEPRESSION [None]
  - CHOLELITHIASIS [None]
  - NAUSEA [None]
  - ABDOMINAL PAIN [None]
  - GALLBLADDER CHOLESTEROLOSIS [None]
  - BENIGN NEOPLASM [None]
